FAERS Safety Report 5589680-5 (Version None)
Quarter: 2008Q1

REPORT INFORMATION
  Report Type: 
  Country: None (occurrence: None)
  Receive Date: 20080114
  Receipt Date: 20080103
  Transmission Date: 20080703
  Serious: Yes (Other)
  Sender: FDA-Public Use
  Company Number: B0415695A

PATIENT
  Age: 39 Year
  Sex: Female

DRUGS (1)
  1. SEROXAT [Suspect]
     Route: 065
     Dates: start: 19991126

REACTIONS (13)
  - AGITATION [None]
  - ANXIETY [None]
  - DEPRESSION [None]
  - DIZZINESS [None]
  - DRUG WITHDRAWAL SYNDROME [None]
  - DRY MOUTH [None]
  - FATIGUE [None]
  - HYPERHIDROSIS [None]
  - ILL-DEFINED DISORDER [None]
  - NAUSEA [None]
  - SUICIDAL IDEATION [None]
  - TEARFULNESS [None]
  - TENSION [None]
